FAERS Safety Report 8475383-6 (Version None)
Quarter: 2012Q2

REPORT INFORMATION
  Report Type: 
  Country: None (occurrence: None)
  Receive Date: 20120628
  Receipt Date: 20120625
  Transmission Date: 20120825
  Serious: No
  Sender: FDA-Public Use
  Company Number: US-BAYER-2012-063289

PATIENT
  Age: 24 Year
  Sex: Female

DRUGS (1)
  1. MIRENA [Suspect]
     Indication: PELVIC PAIN
     Dosage: 20 MCG/24HR, CONT
     Route: 015
     Dates: start: 20120621, end: 20120621

REACTIONS (1)
  - DEVICE EXPULSION [None]
